FAERS Safety Report 20245576 (Version 1)
Quarter: 2021Q4

REPORT INFORMATION
  Report Type: Spontaneous
  Country: RS (occurrence: RS)
  Receive Date: 20211229
  Receipt Date: 20211229
  Transmission Date: 20220303
  Serious: Yes (Other)
  Sender: FDA-Public Use
  Company Number: RS-NOVARTISPH-NVSC2021RS296597

PATIENT
  Age: 61 Year
  Sex: Male

DRUGS (1)
  1. COSENTYX [Suspect]
     Active Substance: SECUKINUMAB
     Indication: Psoriasis
     Dosage: 300 MG, QMO
     Route: 058
     Dates: start: 202009

REACTIONS (6)
  - Balanoposthitis [Not Recovered/Not Resolved]
  - Pruritus genital [Not Recovered/Not Resolved]
  - Penile pain [Not Recovered/Not Resolved]
  - Penile erythema [Not Recovered/Not Resolved]
  - Phimosis [Not Recovered/Not Resolved]
  - Penile erosion [Not Recovered/Not Resolved]

NARRATIVE: CASE EVENT DATE: 20211001
